FAERS Safety Report 7268697-9 (Version None)
Quarter: 2011Q1

REPORT INFORMATION
  Report Type: 
  Country: None (occurrence: None)
  Receive Date: 20110121
  Receipt Date: 20110106
  Transmission Date: 20110831
  Serious: Yes (Hospitalization)
  Sender: FDA-Public Use
  Company Number: 2011SP000487

PATIENT
  Sex: Female

DRUGS (1)
  1. PUREGON (FOLLITROPIN BETA /01348901/) [Suspect]
     Indication: INFERTILITY FEMALE

REACTIONS (2)
  - CEREBROVASCULAR ACCIDENT [None]
  - PREGNANCY [None]
